FAERS Safety Report 8391763-1 (Version None)
Quarter: 2012Q2

REPORT INFORMATION
  Report Type: 
  Country: None (occurrence: None)
  Receive Date: 20120529
  Receipt Date: 20120515
  Transmission Date: 20120825
  Serious: Yes (Hospitalization)
  Sender: FDA-Public Use
  Company Number: PT-JNJFOC-20120302788

PATIENT
  Age: 46 Year
  Sex: Male

DRUGS (5)
  1. ACETAMINOPHEN [Suspect]
     Route: 065
  2. HALOPERIDOL [Suspect]
     Indication: AGITATION
     Route: 030
  3. ACETAMINOPHEN [Suspect]
     Indication: NEUROLEPTIC MALIGNANT SYNDROME
     Route: 065
  4. DANTROLENE SODIUM [Suspect]
     Indication: NEUROLEPTIC MALIGNANT SYNDROME
     Route: 065
  5. CISORDINOL [Suspect]
     Indication: AGITATION
     Route: 030

REACTIONS (2)
  - HEPATIC FAILURE [None]
  - NEUROLEPTIC MALIGNANT SYNDROME [None]
